FAERS Safety Report 24029838 (Version 1)
Quarter: 2024Q2

REPORT INFORMATION
  Report Type: Other
  Country: AU (occurrence: AU)
  Receive Date: 20240628
  Receipt Date: 20240628
  Transmission Date: 20240715
  Serious: Yes (Other)
  Sender: FDA-Public Use
  Company Number: AU-LUPIN PHARMACEUTICALS INC.-2024-05365

PATIENT

DRUGS (6)
  1. ROSUVASTATIN [Suspect]
     Active Substance: ROSUVASTATIN
     Indication: Product used for unknown indication
     Dosage: UNK
     Route: 065
  2. ALLOPURINOL [Suspect]
     Active Substance: ALLOPURINOL
     Indication: Product used for unknown indication
     Dosage: UNK
     Route: 065
  3. FLUTICASONE PROPIONATE\SALMETEROL XINAFOATE [Suspect]
     Active Substance: FLUTICASONE PROPIONATE\SALMETEROL XINAFOATE
     Indication: Product used for unknown indication
     Dosage: UNK
     Route: 065
  4. LERCANIDIPINE HYDROCHLORIDE [Suspect]
     Active Substance: LERCANIDIPINE HYDROCHLORIDE
     Indication: Product used for unknown indication
     Dosage: UNK
     Route: 065
  5. METOPROLOL TARTRATE [Suspect]
     Active Substance: METOPROLOL TARTRATE
     Indication: Product used for unknown indication
     Dosage: UNK
     Route: 065
  6. TELMISARTAN [Suspect]
     Active Substance: TELMISARTAN
     Indication: Product used for unknown indication
     Dosage: UNK
     Route: 065

REACTIONS (25)
  - Small fibre neuropathy [Unknown]
  - Asthenia [Unknown]
  - Autonomic neuropathy [Unknown]
  - COVID-19 [Unknown]
  - Clostridium difficile infection [Unknown]
  - Clumsiness [Unknown]
  - Cognitive disorder [Unknown]
  - Cranial nerve disorder [Unknown]
  - Encephalopathy [Unknown]
  - Eye pain [Unknown]
  - Giant cell arteritis [Unknown]
  - Hypercalcaemia [Unknown]
  - Hypoaesthesia [Unknown]
  - Jaw disorder [Unknown]
  - Meningitis aseptic [Unknown]
  - Mononeuropathy multiplex [Unknown]
  - Myelitis [Unknown]
  - Optic neuropathy [Unknown]
  - Oral discomfort [Unknown]
  - Paraesthesia [Unknown]
  - Peripheral sensorimotor neuropathy [Unknown]
  - Peripheral sensory neuropathy [Unknown]
  - Red blood cell sedimentation rate increased [Unknown]
  - Gait disturbance [Unknown]
  - Sjogren^s syndrome [Unknown]
